FAERS Safety Report 5596589-X (Version None)
Quarter: 2008Q1

REPORT INFORMATION
  Report Type: 
  Country: None (occurrence: None)
  Receive Date: 20080118
  Receipt Date: 20080109
  Transmission Date: 20080703
  Serious: Yes (Other)
  Sender: FDA-Public Use
  Company Number: US-PFIZER INC-2007101247

PATIENT
  Sex: Male
  Weight: 86.2 kg

DRUGS (10)
  1. CHANTIX [Suspect]
     Indication: SMOKING CESSATION THERAPY
     Dates: start: 20071101, end: 20071120
  2. ADVAIR DISKUS 100/50 [Concomitant]
     Route: 048
  3. TAMSULOSIN HCL [Concomitant]
     Route: 048
  4. PROTONIX [Concomitant]
     Route: 048
  5. LASIX [Concomitant]
     Route: 048
  6. PROSCAR [Concomitant]
     Route: 048
  7. POTASSIUM CHLORIDE [Concomitant]
     Route: 048
  8. GABAPENTIN [Concomitant]
     Route: 048
  9. ANTIBIOTICS [Concomitant]
     Route: 048
  10. TYLENOL [Concomitant]
     Route: 048

REACTIONS (8)
  - ABNORMAL BEHAVIOUR [None]
  - AGITATION [None]
  - GENERAL PHYSICAL CONDITION ABNORMAL [None]
  - LETHARGY [None]
  - MENTAL STATUS CHANGES [None]
  - PERSONALITY DISORDER [None]
  - UPPER LIMB FRACTURE [None]
  - VOMITING [None]
